FAERS Safety Report 9358849 (Version 1)
Quarter: 2013Q2

REPORT INFORMATION
  Report Type: Spontaneous
  Country: GB (occurrence: GB)
  Receive Date: 20130620
  Receipt Date: 20130620
  Transmission Date: 20140414
  Serious: Yes (Disabling)
  Sender: FDA-Public Use
  Company Number: GB-TEVA-413540ISR

PATIENT
  Age: 73 Year
  Sex: Male
  Weight: 89.6 kg

DRUGS (3)
  1. TAMSULOSIN [Suspect]
     Dates: start: 20130408
  2. OXYTETRACYCLINE [Concomitant]
     Dates: start: 20130214
  3. SIMVASTATIN [Concomitant]
     Dates: start: 20130214

REACTIONS (3)
  - Abdominal discomfort [Recovered/Resolved]
  - Abdominal pain [Unknown]
  - Feeling abnormal [Unknown]
